FAERS Safety Report 8985603 (Version 2)
Quarter: 2014Q2

REPORT INFORMATION
  Report Type: Spontaneous
  Country: BE (occurrence: BE)
  Receive Date: 20121226
  Receipt Date: 20131018
  Transmission Date: 20141212
  Serious: Yes (Other)
  Sender: FDA-Public Use
  Company Number: BE-PFIZER INC-2012322818

PATIENT
  Age: 66 Year
  Sex: Female
  Weight: 78 kg

DRUGS (2)
  1. SOLU-MEDROL [Suspect]
     Indication: PROPHYLACTIC CHEMOTHERAPY
     Dosage: 125 MG, SINGLE
     Route: 042
     Dates: start: 20121114, end: 20121114
  2. ZANTAC [Suspect]
     Indication: PROPHYLACTIC CHEMOTHERAPY
     Dosage: 100 MG, UNK
     Route: 042
     Dates: start: 20121114, end: 20121114

REACTIONS (3)
  - Erythema [Recovered/Resolved]
  - Paraesthesia [Recovered/Resolved]
  - Dyspnoea [Recovered/Resolved]
